FAERS Safety Report 8061846-4 (Version None)
Quarter: 2012Q1

REPORT INFORMATION
  Report Type: 
  Country: None (occurrence: None)
  Receive Date: 20120123
  Receipt Date: 20120116
  Transmission Date: 20120608
  Serious: No
  Sender: FDA-Public Use
  Company Number: US-PFIZER INC-2012013227

PATIENT
  Sex: Female
  Weight: 104 kg

DRUGS (8)
  1. LYRICA [Suspect]
     Indication: HERPES ZOSTER
     Dosage: 75 MG, 2X/DAY
     Route: 048
     Dates: start: 20080101, end: 20110101
  2. LYRICA [Suspect]
     Indication: POST-TRAUMATIC NECK SYNDROME
  3. FISH OIL [Concomitant]
     Dosage: UNK
  4. CRESTOR [Concomitant]
     Indication: BLOOD TRIGLYCERIDES INCREASED
     Dosage: 5 MG, DAILY
  5. PREMARIN [Concomitant]
     Indication: HYSTERECTOMY
     Dosage: UNK
  6. METFORMIN [Concomitant]
     Indication: DIABETES MELLITUS
     Dosage: 1000 MG, 2X/DAY
  7. LANTUS [Concomitant]
     Indication: DIABETES MELLITUS
     Dosage: UNK
  8. WARFARIN SODIUM [Concomitant]
     Indication: CARDIAC DISORDER
     Dosage: 2.5MG DAILY FOR THREE DAYS IN WEEK AND 5MG DAILY FOR FOUR DAYS IN WEEK
     Route: 048

REACTIONS (2)
  - PAIN IN EXTREMITY [None]
  - NECK PAIN [None]
